FAERS Safety Report 13197950 (Version 1)
Quarter: 2017Q1

REPORT INFORMATION
  Report Type: Spontaneous
  Country: US (occurrence: US)
  Receive Date: 20170208
  Receipt Date: 20170208
  Transmission Date: 20170428
  Serious: No
  Sender: FDA-Public Use
  Company Number: US-PERRIGO-16US014183

PATIENT
  Age: 74 Year
  Sex: Female
  Weight: 63.49 kg

DRUGS (5)
  1. IBUPROFEN AND DIPHENHYDRAMINE CITRATE [Suspect]
     Active Substance: DIPHENHYDRAMINE CITRATE\IBUPROFEN
     Indication: NEURALGIA
     Dosage: 2 TABLETS, SINGLE
     Route: 048
     Dates: start: 20160224, end: 20160224
  2. VITAMINS NOS [Concomitant]
     Active Substance: VITAMINS
     Indication: SUPPLEMENTATION THERAPY
     Dosage: UNK
     Route: 065
  3. LOVASTATIN. [Concomitant]
     Active Substance: LOVASTATIN
     Indication: BLOOD CHOLESTEROL INCREASED
     Dosage: 10 MG
     Route: 065
  4. IBUPROFEN AND DIPHENHYDRAMINE CITRATE [Suspect]
     Active Substance: DIPHENHYDRAMINE CITRATE\IBUPROFEN
     Indication: INSOMNIA
     Dosage: 2 TABLETS, SINGLE
     Route: 048
     Dates: start: 20160309, end: 20160309
  5. LISINOPRIL. [Concomitant]
     Active Substance: LISINOPRIL
     Indication: HYPERTENSION
     Dosage: 10 MG
     Route: 065

REACTIONS (1)
  - Drug ineffective [Unknown]

NARRATIVE: CASE EVENT DATE: 20160224
